FAERS Safety Report 8547342-6 (Version None)
Quarter: 2012Q3

REPORT INFORMATION
  Report Type: 
  Country: None (occurrence: None)
  Receive Date: 20120727
  Receipt Date: 20120319
  Transmission Date: 20120928
  Serious: No
  Sender: FDA-Public Use
  Company Number: US-ASTRAZENECA-2012SE19214

PATIENT
  Age: 50 Year
  Sex: Female

DRUGS (2)
  1. SEROQUEL [Suspect]
     Indication: AFFECTIVE DISORDER
     Dosage: UP TO 2 TABLETS DAILY
     Route: 048
  2. SEROQUEL [Suspect]
     Indication: PARANOIA
     Dosage: UP TO 2 TABLETS DAILY
     Route: 048

REACTIONS (2)
  - INTENTIONAL DRUG MISUSE [None]
  - PSYCHIATRIC SYMPTOM [None]
